FAERS Safety Report 11655983 (Version 2)
Quarter: 2015Q4

REPORT INFORMATION
  Report Type: Spontaneous
  Country: US (occurrence: US)
  Receive Date: 20151023
  Receipt Date: 20151217
  Transmission Date: 20160304
  Serious: No
  Sender: FDA-Public Use
  Company Number: US-B.I. PHARMACEUTICALS,INC./RIDGEFIELD-2015-BI-56163BP

PATIENT
  Age: 59 Year
  Sex: Male
  Weight: 88 kg

DRUGS (12)
  1. SPIRIVA [Suspect]
     Active Substance: TIOTROPIUM BROMIDE MONOHYDRATE
     Indication: INHALATION THERAPY
     Dosage: 18 MCG
     Route: 055
     Dates: start: 20140814, end: 201509
  2. OMEPRAZOLE. [Concomitant]
     Active Substance: OMEPRAZOLE
     Indication: GASTROOESOPHAGEAL REFLUX DISEASE
     Dosage: FORMULATION: DELAYED RELEASE; DAILY DOSE: 1 CAPSULE DAILY PRN FOR ACID REFLUX
     Route: 048
     Dates: start: 20130130
  3. IBUPROFEN. [Concomitant]
     Active Substance: IBUPROFEN
     Indication: BACK PAIN
     Dosage: DAILY DOSE: 1 TABLET EVERY 8 HOURS AS NEEDED
     Route: 048
     Dates: start: 20130130
  4. IBUPROFEN. [Concomitant]
     Active Substance: IBUPROFEN
     Indication: HEADACHE
  5. ONE-A-DAY NOS [Concomitant]
     Active Substance: MINERALS\VITAMINS
     Indication: SUPPLEMENTATION THERAPY
     Route: 048
     Dates: start: 2005
  6. SPIRIVA [Suspect]
     Active Substance: TIOTROPIUM BROMIDE MONOHYDRATE
     Indication: CHRONIC OBSTRUCTIVE PULMONARY DISEASE
  7. FISH OIL [Concomitant]
     Active Substance: FISH OIL
     Indication: PRODUCT USED FOR UNKNOWN INDICATION
     Route: 048
  8. ONE TOUCH [Concomitant]
     Indication: PRODUCT USED FOR UNKNOWN INDICATION
     Dosage: ULTRA MISC
     Route: 065
     Dates: start: 20110106
  9. ASPIRIN. [Concomitant]
     Active Substance: ASPIRIN
     Indication: PRODUCT USED FOR UNKNOWN INDICATION
     Route: 048
  10. LOSARTAN POTASSIUM. [Concomitant]
     Active Substance: LOSARTAN POTASSIUM
     Indication: BLOOD PRESSURE MANAGEMENT
     Dosage: 25 MG
     Route: 048
     Dates: start: 20150622
  11. LOSARTAN POTASSIUM. [Concomitant]
     Active Substance: LOSARTAN POTASSIUM
     Indication: HYPERTENSION
  12. PROAIR HFA [Concomitant]
     Active Substance: ALBUTEROL SULFATE
     Indication: COUGH
     Dosage: FORMULATION: INHALATION AEROSOL SOLUTION; STRENGTH: 108 (90 BASE) MCG/ACT; DAILY DOSE: 1-2 PUFFS EVE
     Route: 048
     Dates: start: 20110610

REACTIONS (3)
  - Cough [Recovered/Resolved]
  - Dyspnoea [Recovered/Resolved]
  - Chest discomfort [Recovered/Resolved]

NARRATIVE: CASE EVENT DATE: 201506
